FAERS Safety Report 24031842 (Version 1)
Quarter: 2024Q2

REPORT INFORMATION
  Report Type: Spontaneous
  Country: US (occurrence: US)
  Receive Date: 20240629
  Receipt Date: 20240629
  Transmission Date: 20240716
  Serious: Yes (Hospitalization)
  Sender: FDA-Public Use
  Company Number: US-AMAROX PHARMA-HET2024US01982

PATIENT
  Age: 63 Year
  Sex: Female
  Weight: 83 kg

DRUGS (2)
  1. IRBESARTAN [Suspect]
     Active Substance: IRBESARTAN
     Indication: Blood pressure abnormal
     Dosage: 300 MILLIGRAM, QD (1 TABLET A DAY)
     Route: 048
     Dates: start: 20240520
  2. IRBESARTAN [Suspect]
     Active Substance: IRBESARTAN
     Dosage: 300 MILLIGRAM, QD (1 TABLET A DAY)
     Route: 048
     Dates: end: 20240530

REACTIONS (2)
  - Hypertension [Recovered/Resolved]
  - Dizziness [Unknown]

NARRATIVE: CASE EVENT DATE: 20240529
